FAERS Safety Report 7907869-4 (Version None)
Quarter: 2011Q4

REPORT INFORMATION
  Report Type: 
  Country: None (occurrence: None)
  Receive Date: 20111110
  Receipt Date: 20111108
  Transmission Date: 20120403
  Serious: Yes (Other)
  Sender: FDA-Public Use
  Company Number: CA-BAYER-2011-107471

PATIENT
  Age: 24 Year
  Sex: Female

DRUGS (2)
  1. ACETAMINOPHEN [Concomitant]
     Indication: PREMEDICATION
  2. BETASERON [Suspect]
     Indication: PRODUCT USED FOR UNKNOWN INDICATION
     Dosage: 8 MIU, QOD
     Route: 058
     Dates: start: 20111001

REACTIONS (7)
  - INJECTION SITE PAIN [None]
  - FEELING COLD [None]
  - PYREXIA [None]
  - ABASIA [None]
  - TREMOR [None]
  - BLINDNESS TRANSIENT [None]
  - FATIGUE [None]
